FAERS Safety Report 9026643 (Version 1)
Quarter: 2013Q1

REPORT INFORMATION
  Report Type: Spontaneous
  Country: US (occurrence: None)
  Receive Date: 20130114
  Receipt Date: 20130114
  Transmission Date: 20140127
  Serious: No
  Sender: FDA-Public Use
  Company Number: None

PATIENT
  Age: 60 Year
  Sex: Female
  Weight: 78.02 kg

DRUGS (1)
  1. VESICARE [Suspect]
     Indication: URINARY INCONTINENCE
     Dates: start: 20121103, end: 20121121

REACTIONS (6)
  - Cough [None]
  - Upper-airway cough syndrome [None]
  - Aptyalism [None]
  - Dizziness [None]
  - Vision blurred [None]
  - Anxiety [None]
